FAERS Safety Report 12688289 (Version 2)
Quarter: 2016Q3

REPORT INFORMATION
  Report Type: Report from Study
  Country: US (occurrence: US)
  Receive Date: 20160825
  Receipt Date: 20160909
  Transmission Date: 20161109
  Serious: Yes (Other)
  Sender: FDA-Public Use
  Company Number: US-TAKEDA-2016TUS014597

PATIENT
  Age: 43 Year
  Sex: Female
  Weight: 87.75 kg

DRUGS (11)
  1. BREO ELLIPTA [Concomitant]
     Active Substance: FLUTICASONE FUROATE\VILANTEROL TRIFENATATE
     Indication: ASTHMA
     Dosage: UNK
  2. SINGULAIR [Concomitant]
     Active Substance: MONTELUKAST SODIUM
     Indication: ASTHMA
  3. METHOTREXATE. [Concomitant]
     Active Substance: METHOTREXATE
     Indication: ARTHRITIS
     Dosage: UNK, 1/WEEK
     Route: 050
  4. VEDOLIZUMAB [Suspect]
     Active Substance: VEDOLIZUMAB
     Indication: CROHN^S DISEASE
     Dosage: 300 MG, UNK
     Route: 042
     Dates: start: 20160708
  5. SINGULAIR [Concomitant]
     Active Substance: MONTELUKAST SODIUM
     Indication: HYPERSENSITIVITY
     Dosage: 10 MG, QD
     Route: 048
  6. FLONASE                            /00908302/ [Concomitant]
     Active Substance: MOMETASONE FUROATE
     Indication: HYPERSENSITIVITY
     Dosage: UNK
     Route: 048
  7. ZYRTEC [Concomitant]
     Active Substance: CETIRIZINE HYDROCHLORIDE
     Indication: HYPERSENSITIVITY
     Dosage: UNK
     Route: 048
  8. GABAPENTIN. [Concomitant]
     Active Substance: GABAPENTIN
     Dosage: 600 MG, UNK
     Route: 048
  9. DESIPRAMINE [Concomitant]
     Active Substance: DESIPRAMINE
     Indication: CENTRAL PAIN SYNDROME
     Dosage: 50 MG, UNK
     Route: 048
  10. GABAPENTIN. [Concomitant]
     Active Substance: GABAPENTIN
     Indication: NEUROPATHY PERIPHERAL
     Dosage: 1200 UNK, UNK
     Route: 048
  11. PROAIR HFA [Concomitant]
     Active Substance: ALBUTEROL SULFATE
     Indication: ASTHMA
     Dosage: UNK
     Route: 048

REACTIONS (26)
  - Dysuria [Unknown]
  - Pain in extremity [Unknown]
  - Decreased appetite [Recovered/Resolved]
  - Abdominal pain [Recovered/Resolved]
  - Pollakiuria [Unknown]
  - Diarrhoea [Unknown]
  - Myalgia [Unknown]
  - Blood potassium decreased [Unknown]
  - Nausea [Recovered/Resolved]
  - Hepatomegaly [Unknown]
  - Flatulence [Recovered/Resolved]
  - Pruritus [Recovered/Resolved]
  - Nephritis [Unknown]
  - Kidney enlargement [Unknown]
  - Miliaria [Recovered/Resolved]
  - Lip dry [Recovered/Resolved]
  - Hypersensitivity [Recovered/Resolved]
  - Fistula [Unknown]
  - Blood urine present [Unknown]
  - Pain [Recovered/Resolved]
  - Micturition urgency [Unknown]
  - Flank pain [Unknown]
  - Chills [Unknown]
  - Dizziness [Recovered/Resolved]
  - Fatigue [Recovered/Resolved]
  - Pyrexia [Recovered/Resolved]

NARRATIVE: CASE EVENT DATE: 20160723
